FAERS Safety Report 5867047-X (Version None)
Quarter: 2008Q3

REPORT INFORMATION
  Report Type: 
  Country: None (occurrence: None)
  Receive Date: 20080902
  Receipt Date: 20080825
  Transmission Date: 20090109
  Serious: Yes (Hospitalization)
  Sender: FDA-Public Use
  Company Number: B0527614A

PATIENT
  Age: 7 Year
  Sex: Female

DRUGS (4)
  1. ALKERAN [Suspect]
     Indication: LUNG NEOPLASM
     Dosage: 210MGM2 CYCLIC
     Route: 065
  2. BUSULPHAN [Suspect]
     Indication: LUNG NEOPLASM
     Dosage: 20MGK CYCLIC
     Route: 065
  3. THIOTEPA [Suspect]
     Indication: LUNG NEOPLASM
     Dosage: 800MGM2 CYCLIC
     Route: 065
  4. IFOSFAMIDE [Suspect]
     Indication: LUNG NEOPLASM
     Dosage: 12.5GM2 CYCLIC
     Route: 065

REACTIONS (4)
  - SWELLING [None]
  - THYROID CANCER [None]
  - THYROID NEOPLASM [None]
  - TREATMENT RELATED SECONDARY MALIGNANCY [None]
